FAERS Safety Report 17022805 (Version 2)
Quarter: 2019Q4

REPORT INFORMATION
  Report Type: Spontaneous
  Country: BR (occurrence: BR)
  Receive Date: 20191112
  Receipt Date: 20191223
  Transmission Date: 20200122
  Serious: Yes (Other)
  Sender: FDA-Public Use
  Company Number: NVSC2019BR027940

PATIENT
  Age: 63 Year
  Sex: Female
  Weight: 85 kg

DRUGS (9)
  1. LIPLESS [Concomitant]
     Active Substance: CIPROFIBRATE
     Indication: BLOOD CHOLESTEROL ABNORMAL
     Dosage: 100 MG, QD (STARTED ABOUT 2 YEARS AGO)
     Route: 048
  2. OSCAL D [Concomitant]
     Active Substance: CALCIUM CARBONATE\CHOLECALCIFEROL
     Indication: OSTEOPOROSIS
     Dosage: 1 DF, QD (STARTED ABOUT 1 YEAR AND A HALF AGO)
     Route: 048
  3. OMEGA 3 [Concomitant]
     Active Substance: OMEGA-3 FATTY ACIDS
     Indication: VITAMIN SUPPLEMENTATION
     Dosage: 1 DF, QD (STARTED 2 MONTHS AGO)
     Route: 048
  4. MAGNESIUM CHLORIDE. [Concomitant]
     Active Substance: MAGNESIUM CHLORIDE
     Indication: VITAMIN SUPPLEMENTATION
     Dosage: 1 DF, QD (STARTED ABOUT 1 YEAR AND A HALF AGO)
     Route: 048
  5. ADDERA D3 [Concomitant]
     Active Substance: CHOLECALCIFEROL
     Indication: VITAMIN SUPPLEMENTATION
     Dosage: 7000 IU, QD (STARTED 1 YEAR AND A HALF AGO)
     Route: 048
  6. FEMARA [Suspect]
     Active Substance: LETROZOLE
     Indication: BREAST CANCER
     Dosage: 2.5 MG, QD
     Route: 048
     Dates: start: 2017
  7. RUSOVAS [Concomitant]
     Active Substance: ROSUVASTATIN
     Indication: BLOOD CHOLESTEROL ABNORMAL
     Dosage: 20 MG, QD (STARTED ABOUT 2 YEARS AGO)
     Route: 048
  8. XARELTO [Concomitant]
     Active Substance: RIVAROXABAN
     Indication: ANTICOAGULANT THERAPY
     Dosage: 15 MG, BID (STARTED ABOUT 2 YEARS AGO)
     Route: 048
  9. NATRILIX [Concomitant]
     Active Substance: INDAPAMIDE
     Indication: ANTICOAGULANT THERAPY
     Dosage: 1.5 MG, QD (STARTED ABOUT 2 YEARS AGO)
     Route: 048

REACTIONS (7)
  - Blood glucose increased [Unknown]
  - Tension headache [Recovered/Resolved]
  - Pulmonary embolism [Recovered/Resolved]
  - Sepsis [Unknown]
  - Chest discomfort [Recovered/Resolved]
  - Uterine infection [Recovered/Resolved]
  - Bladder disorder [Recovered/Resolved]

NARRATIVE: CASE EVENT DATE: 201910
